FAERS Safety Report 16787449 (Version 1)
Quarter: 2019Q3

REPORT INFORMATION
  Report Type: Spontaneous
  Country: DK (occurrence: DK)
  Receive Date: 20190909
  Receipt Date: 20190909
  Transmission Date: 20191005
  Serious: Yes (Other)
  Sender: FDA-Public Use
  Company Number: DK-GLAXOSMITHKLINE-DK2019162236

PATIENT
  Age: 37 Year
  Sex: Male

DRUGS (4)
  1. QUETIAPINE. [Concomitant]
     Active Substance: QUETIAPINE
     Indication: INSOMNIA
     Dosage: STRENGTH: 25 MG.
     Route: 048
     Dates: start: 20161219, end: 20161221
  2. LYRICA [Concomitant]
     Active Substance: PREGABALIN
     Indication: ANXIETY
     Dosage: STRENGTH: CHANGING. DOSAGE: CHANGING.
     Route: 048
     Dates: start: 20160916
  3. BUSPIRONE [Concomitant]
     Active Substance: BUSPIRONE HYDROCHLORIDE
     Indication: ANXIETY
     Dosage: STRENGTH: 5 MG.
     Route: 048
  4. LAMICTAL [Suspect]
     Active Substance: LAMOTRIGINE
     Indication: BIPOLAR DISORDER
     Dosage: STRENGTH: 25 MG.
     Route: 048
     Dates: start: 20161011

REACTIONS (16)
  - Headache [Recovered/Resolved]
  - Nausea [Recovered/Resolved]
  - Hypoacusis [Unknown]
  - Tremor [Recovered/Resolved]
  - Depressed mood [Recovered/Resolved]
  - Visual impairment [Not Recovered/Not Resolved]
  - Pain [Unknown]
  - Diplopia [Not Recovered/Not Resolved]
  - Chest discomfort [Recovered/Resolved]
  - Visual snow syndrome [Not Recovered/Not Resolved]
  - Malaise [Recovered/Resolved]
  - Tinnitus [Not Recovered/Not Resolved]
  - Paraesthesia [Recovered/Resolved]
  - Hyperhidrosis [Recovered/Resolved]
  - Syncope [Recovered/Resolved]
  - Irritability [Recovered/Resolved]

NARRATIVE: CASE EVENT DATE: 20160611
